FAERS Safety Report 11693849 (Version 1)
Quarter: 2015Q4

REPORT INFORMATION
  Report Type: Spontaneous
  Country: US (occurrence: US)
  Receive Date: 20151103
  Receipt Date: 20151103
  Transmission Date: 20160304
  Serious: No
  Sender: FDA-Public Use
  Company Number: US-AKRIMAX-TIR-04762

PATIENT
  Age: 63 Year
  Sex: Female
  Weight: 53.57 kg

DRUGS (1)
  1. TIROSINT [Suspect]
     Active Substance: LEVOTHYROXINE SODIUM
     Indication: THYROIDECTOMY
     Dosage: 50 MCG CAPSULE ONCE DAILY
     Route: 048
     Dates: start: 20150715

REACTIONS (7)
  - Feeling cold [Unknown]
  - Feeling abnormal [Unknown]
  - Arthralgia [Unknown]
  - Somnolence [Unknown]
  - Sedation [Unknown]
  - Hypoaesthesia [Unknown]
  - Pain in extremity [Unknown]

NARRATIVE: CASE EVENT DATE: 20150715
